FAERS Safety Report 12763392 (Version 1)
Quarter: 2016Q3

REPORT INFORMATION
  Report Type: Spontaneous
  Country: US (occurrence: US)
  Receive Date: 20160919
  Receipt Date: 20160919
  Transmission Date: 20161109
  Serious: Yes (Other)
  Sender: FDA-Public Use
  Company Number: None

PATIENT
  Age: 16 Year
  Sex: Male
  Weight: 40.5 kg

DRUGS (1)
  1. SENNA SYRUP [Suspect]
     Active Substance: SENNOSIDES
     Indication: INTESTINAL OBSTRUCTION
     Route: 048

REACTIONS (6)
  - Decreased appetite [None]
  - Product use issue [None]
  - Tracheal inflammation [None]
  - Cough [None]
  - Lethargy [None]
  - Drug ineffective [None]

NARRATIVE: CASE EVENT DATE: 20160821
